FAERS Safety Report 24410662 (Version 1)
Quarter: 2024Q4

REPORT INFORMATION
  Report Type: Spontaneous
  Country: US (occurrence: US)
  Receive Date: 20241008
  Receipt Date: 20241008
  Transmission Date: 20250115
  Serious: Yes (Other)
  Sender: CIPLA
  Company Number: US-CIPLA LTD.-2024US10893

PATIENT

DRUGS (8)
  1. SELEXIPAG [Suspect]
     Active Substance: SELEXIPAG
     Indication: Sjogren^s syndrome
     Dosage: UNK
     Route: 065
  2. SELEXIPAG [Suspect]
     Active Substance: SELEXIPAG
     Indication: Pulmonary hypertension
  3. AMBRISENTAN [Concomitant]
     Active Substance: AMBRISENTAN
     Indication: Sjogren^s syndrome
     Dosage: UNK
     Route: 065
  4. AMBRISENTAN [Concomitant]
     Active Substance: AMBRISENTAN
     Indication: Pulmonary hypertension
  5. TADALAFIL [Concomitant]
     Active Substance: TADALAFIL
     Indication: Sjogren^s syndrome
     Dosage: UNK
     Route: 065
  6. TADALAFIL [Concomitant]
     Active Substance: TADALAFIL
     Indication: Pulmonary hypertension
  7. BUMEX [Concomitant]
     Active Substance: BUMETANIDE
     Indication: Sjogren^s syndrome
     Dosage: UNK
     Route: 065
  8. BUMEX [Concomitant]
     Active Substance: BUMETANIDE
     Indication: Pulmonary hypertension

REACTIONS (2)
  - Ventilation perfusion mismatch [Recovering/Resolving]
  - Condition aggravated [Recovering/Resolving]
